FAERS Safety Report 7484456 (Version 2)
Quarter: 2012Q4

REPORT INFORMATION
  Report Type: 
  Country: US (occurrence: US)
  Receive Date: 20100717
  Receipt Date: 20120924
  Transmission Date: 20130627
  Serious: No
  Sender: FDA-Public Use
  Company Number: US-PFIZER INC-2007103459

PATIENT
  Age: 57 Year
  Sex: Female
  Weight: 49.89 kg

DRUGS (12)
  1. CHANTIX [Suspect]
     Indication: SMOKING CESSATION THERAPY
     Dosage: 0.5 mg, 1x/day
     Route: 048
     Dates: start: 20071127, end: 20071129
  2. CHANTIX [Suspect]
     Dosage: 0.5 mg, 2x/day
     Route: 048
     Dates: start: 20071130, end: 20071203
  3. CHANTIX [Suspect]
     Dosage: 0.5 mg, daily
     Route: 048
     Dates: start: 2012, end: 2012
  4. NEXIUM [Concomitant]
     Dosage: 40 mg, 1x/day
  5. OXYCODONE [Concomitant]
     Dosage: 80 mg, UNK
  6. PLAVIX [Concomitant]
     Dosage: 75 mg, UNK
  7. SIMVASTATIN [Concomitant]
     Dosage: 10 mg, UNK
  8. ATENOLOL [Concomitant]
     Dosage: 25 mg, UNK
  9. SKELAXIN [Concomitant]
     Dosage: 800 mg, as needed
  10. CLONAZEPAM [Concomitant]
     Dosage: 1 mg, UNK
  11. HYDROCODONE [Concomitant]
     Dosage: 10/325
  12. CATAPRES-TTS-2 [Concomitant]
     Dosage: UNK

REACTIONS (3)
  - Abdominal pain upper [Recovered/Resolved]
  - Oesophageal disorder [Recovered/Resolved]
  - Weight decreased [Unknown]
